FAERS Safety Report 14329628 (Version 2)
Quarter: 2018Q2

REPORT INFORMATION
  Report Type: Spontaneous
  Country: US (occurrence: US)
  Receive Date: 20171227
  Receipt Date: 20180507
  Transmission Date: 20180711
  Serious: No
  Sender: FDA-Public Use
  Company Number: US-PFIZER INC-2017548385

PATIENT
  Age: 31 Year
  Sex: Female

DRUGS (1)
  1. ALAVERT ALLERGY [Suspect]
     Active Substance: LORATADINE
     Indication: ALLERGIC SINUSITIS
     Dosage: UNK
     Route: 048
     Dates: start: 201712

REACTIONS (1)
  - Drug ineffective [Not Recovered/Not Resolved]

NARRATIVE: CASE EVENT DATE: 201712
